FAERS Safety Report 5724880-2 (Version None)
Quarter: 2008Q2

REPORT INFORMATION
  Report Type: 
  Country: None (occurrence: None)
  Receive Date: 20080430
  Receipt Date: 20080430
  Transmission Date: 20081010
  Serious: Yes (Hospitalization)
  Sender: FDA-Public Use
  Company Number: None

PATIENT
  Sex: Male
  Weight: 77.3 kg

DRUGS (11)
  1. TEMOZOLOMIDE [Suspect]
     Dosage: 5555 MG
  2. COREG [Concomitant]
  3. PREVACID [Concomitant]
  4. SYNTHROID [Concomitant]
  5. PERCOCET [Concomitant]
  6. HYDROXYZINE [Concomitant]
  7. CLORTRIMAZOLE [Concomitant]
  8. ZOCOR [Concomitant]
  9. ZETIA [Concomitant]
  10. ZOFRAN [Concomitant]
  11. KEPPRA [Concomitant]

REACTIONS (1)
  - ABDOMINAL PAIN [None]
